FAERS Safety Report 12637286 (Version 1)
Quarter: 2016Q3

REPORT INFORMATION
  Report Type: Spontaneous
  Country: US (occurrence: US)
  Receive Date: 20160809
  Receipt Date: 20160809
  Transmission Date: 20161109
  Serious: Yes (Hospitalization)
  Sender: FDA-Public Use
  Company Number: US-BEH-2015054935

PATIENT
  Age: 59 Year
  Sex: Male
  Weight: 63 kg

DRUGS (26)
  1. PREDNISONE. [Concomitant]
     Active Substance: PREDNISONE
  2. ACETAMINOPHEN. [Concomitant]
     Active Substance: ACETAMINOPHEN
  3. RESTASIS [Concomitant]
     Active Substance: CYCLOSPORINE
  4. DOXYCYCLINE. [Concomitant]
     Active Substance: DOXYCYCLINE
  5. BIOTIN [Concomitant]
     Active Substance: BIOTIN
  6. ADVAIR HFA [Concomitant]
     Active Substance: FLUTICASONE PROPIONATE\SALMETEROL XINAFOATE
  7. ATOVAQUONE. [Concomitant]
     Active Substance: ATOVAQUONE
  8. EPIPEN [Concomitant]
     Active Substance: EPINEPHRINE
     Indication: ANAPHYLACTIC REACTION
  9. OMEGA 3 FISH OIL [Concomitant]
     Active Substance: FISH OIL\OMEGA-3 FATTY ACIDS
  10. SINGULAIR [Concomitant]
     Active Substance: MONTELUKAST SODIUM
  11. IRON [Concomitant]
     Active Substance: IRON
  12. PRIVIGEN [Suspect]
     Active Substance: HUMAN IMMUNOGLOBULIN G
     Indication: IMMUNODEFICIENCY COMMON VARIABLE
     Route: 042
  13. SODIUM CHLORIDE. [Concomitant]
     Active Substance: SODIUM CHLORIDE
  14. PRILOSEC [Concomitant]
     Active Substance: OMEPRAZOLE MAGNESIUM
  15. MAGNESIUM OXIDE. [Concomitant]
     Active Substance: MAGNESIUM OXIDE
  16. CALCIUM+D3 [Concomitant]
  17. HEPARIN [Concomitant]
     Active Substance: HEPARIN SODIUM
  18. FLUTICASONE [Concomitant]
     Active Substance: FLUTICASONE\FLUTICASONE PROPIONATE
  19. VALACICLOVIR [Concomitant]
     Active Substance: VALACYCLOVIR HYDROCHLORIDE
  20. ASPIRIN EC [Concomitant]
     Active Substance: ASPIRIN
  21. SIROLIMUS. [Concomitant]
     Active Substance: SIROLIMUS
  22. CENTRUM SILVER [Concomitant]
     Active Substance: MINERALS\VITAMINS
  23. ANDROGEL [Concomitant]
     Active Substance: TESTOSTERONE
  24. PRIVIGEN [Suspect]
     Active Substance: HUMAN IMMUNOGLOBULIN G
     Indication: ACUTE LYMPHOCYTIC LEUKAEMIA
     Route: 042
  25. SOTALOL. [Concomitant]
     Active Substance: SOTALOL
  26. LIDOCAINE. [Concomitant]
     Active Substance: LIDOCAINE

REACTIONS (2)
  - Pyrexia [Recovered/Resolved]
  - Dyspnoea [Recovered/Resolved]

NARRATIVE: CASE EVENT DATE: 20150923
